FAERS Safety Report 8161230-9 (Version None)
Quarter: 2012Q1

REPORT INFORMATION
  Report Type: 
  Country: None (occurrence: None)
  Receive Date: 20120103
  Receipt Date: 20111018
  Transmission Date: 20120608
  Serious: Yes (Other)
  Sender: FDA-Public Use
  Company Number: AE-2011-001855

PATIENT
  Age: 58 Year
  Sex: Female
  Weight: 59.8748 kg

DRUGS (6)
  1. CLONAZEPAM [Concomitant]
  2. PEGASYS [Concomitant]
  3. RIBASPHERE [Concomitant]
  4. WELLBUTRIN [Concomitant]
  5. ONDANSETRON [Concomitant]
  6. INCIVEK [Suspect]
     Dosage: 2250 MG (750 MG, 1 IN 8 HR), ORAL
     Route: 048
     Dates: start: 20110817

REACTIONS (4)
  - DYSGEUSIA [None]
  - ANAEMIA [None]
  - DRY MOUTH [None]
  - DRY EYE [None]
